FAERS Safety Report 13045533 (Version 1)
Quarter: 2016Q4

REPORT INFORMATION
  Report Type: Spontaneous
  Country: US (occurrence: US)
  Receive Date: 20161220
  Receipt Date: 20161220
  Transmission Date: 20170207
  Serious: Yes (Hospitalization)
  Sender: FDA-Public Use
  Company Number: None

PATIENT
  Sex: Male
  Weight: 61.4 kg

DRUGS (4)
  1. ZITHROMAX [Concomitant]
     Active Substance: AZITHROMYCIN DIHYDRATE
  2. VIEKIRA PAK [Suspect]
     Active Substance: DASABUVIR\OMBITASVIR\PARITAPREVIR\RITONAVIR
     Indication: HEPATITIS C
     Dosage: PART 1 AND PART 2 X1/DAY PO
     Route: 048
     Dates: start: 20160718, end: 20161009
  3. VITAMIN D [Concomitant]
     Active Substance: CHOLECALCIFEROL
  4. RIBAVIRIN. [Suspect]
     Active Substance: RIBAVIRIN
     Indication: HEPATITIS C
     Route: 048
     Dates: start: 20160718, end: 20161009

REACTIONS (2)
  - Drug abuse [None]
  - Seizure [None]

NARRATIVE: CASE EVENT DATE: 20160831
